FAERS Safety Report 7371052-4 (Version None)
Quarter: 2011Q1

REPORT INFORMATION
  Report Type: 
  Country: None (occurrence: None)
  Receive Date: 20110324
  Receipt Date: 20110317
  Transmission Date: 20110831
  Serious: Yes (Hospitalization, Other)
  Sender: FDA-Public Use
  Company Number: FR-ABBOTT-07P-056-0415540-00

PATIENT
  Sex: Female
  Weight: 1.3 kg

DRUGS (8)
  1. ZIDOVUDINE [Suspect]
     Route: 042
     Dates: start: 20070717, end: 20070726
  2. LAMIVUDINE [Suspect]
     Indication: HIV INFECTION
     Route: 048
     Dates: start: 20070712, end: 20070726
  3. NEVIRAPINE [Suspect]
     Indication: HIV INFECTION
     Route: 048
     Dates: start: 20070711, end: 20070712
  4. ZIDOVUDINE [Suspect]
     Indication: HIV INFECTION
     Route: 042
     Dates: start: 20070712, end: 20070717
  5. ZIDOVUDINE [Suspect]
     Dates: start: 20070711, end: 20070711
  6. NEVIRAPINE [Suspect]
     Dates: start: 20070615, end: 20070616
  7. NEVIRAPINE [Suspect]
     Dates: start: 20070613, end: 20070614
  8. KALETRA [Suspect]
     Indication: HIV INFECTION
     Route: 048
     Dates: start: 20070712, end: 20070715

REACTIONS (6)
  - DRUG LEVEL INCREASED [None]
  - OVERDOSE [None]
  - HAEMATOCHEZIA [None]
  - RENAL FAILURE ACUTE [None]
  - TOXICITY TO VARIOUS AGENTS [None]
  - GASTROINTESTINAL DISORDER [None]
